FAERS Safety Report 13362602 (Version 1)
Quarter: 2017Q1

REPORT INFORMATION
  Report Type: Spontaneous
  Country: US (occurrence: US)
  Receive Date: 20170322
  Receipt Date: 20170322
  Transmission Date: 20170429
  Serious: No
  Sender: FDA-Public Use
  Company Number: None

PATIENT
  Age: 51 Year
  Sex: Female

DRUGS (1)
  1. IMATINIB MES [Suspect]
     Active Substance: IMATINIB MESYLATE
     Indication: GASTROINTESTINAL STROMAL TUMOUR

REACTIONS (5)
  - Diarrhoea [None]
  - Blood phosphorus decreased [None]
  - Face oedema [None]
  - Nausea [None]
  - Oedema peripheral [None]

NARRATIVE: CASE EVENT DATE: 20170128
